FAERS Safety Report 7120672-0 (Version None)
Quarter: 2010Q4

REPORT INFORMATION
  Report Type: 
  Country: None (occurrence: None)
  Receive Date: 20101124
  Receipt Date: 20100617
  Transmission Date: 20110411
  Serious: Yes (Hospitalization, Other)
  Sender: FDA-Public Use
  Company Number: US-BAYER-201018395NA

PATIENT
  Age: 16 Year
  Sex: Female
  Weight: 100 kg

DRUGS (5)
  1. YAZ [Suspect]
     Indication: PREMENSTRUAL SYNDROME
     Route: 048
     Dates: start: 20070716, end: 20080227
  2. ANTIBIOTICS [Concomitant]
  3. IBUPROFEN [Concomitant]
  4. MORPHINE [Concomitant]
  5. LEVSIN [Concomitant]

REACTIONS (5)
  - ABDOMINAL PAIN UPPER [None]
  - BILIARY DYSKINESIA [None]
  - CONSTIPATION [None]
  - HEPATOBILIARY SCAN ABNORMAL [None]
  - NAUSEA [None]
